FAERS Safety Report 15918397 (Version 1)
Quarter: 2019Q1

REPORT INFORMATION
  Report Type: Report from Study
  Country: FR (occurrence: FR)
  Receive Date: 20190205
  Receipt Date: 20190205
  Transmission Date: 20190417
  Serious: Yes (Other)
  Sender: FDA-Public Use
  Company Number: FR-MYLANLABS-2019M1009480

PATIENT
  Age: 78 Year
  Sex: Male

DRUGS (6)
  1. DEXAMETHASONE W/NEOMYCIN [Suspect]
     Active Substance: DEXAMETHASONE\NEOMYCIN
     Indication: OPEN ANGLE GLAUCOMA
     Dosage: TWICE A DAY
     Route: 061
  2. PILOCARPINE. [Suspect]
     Active Substance: PILOCARPINE
     Indication: OPEN ANGLE GLAUCOMA
     Dosage: TWICE A DAY
     Route: 061
  3. BRIMONIDINE [Suspect]
     Active Substance: BRIMONIDINE TARTRATE
     Indication: OPEN ANGLE GLAUCOMA
     Dosage: TWICE A DAY
     Route: 061
  4. LATANOPROST. [Suspect]
     Active Substance: LATANOPROST
     Indication: OPEN ANGLE GLAUCOMA
     Dosage: PRESERVED FORM; ONCE A DAY
     Route: 061
  5. DORZOLAMIDE HYDROCHLORIDE AND TIMOLOL MALEATE [Suspect]
     Active Substance: DORZOLAMIDE HYDROCHLORIDE\TIMOLOL MALEATE
     Indication: OPEN ANGLE GLAUCOMA
     Dosage: TWICE A DAY
     Route: 061
  6. ACETAZOLAMIDE. [Suspect]
     Active Substance: ACETAZOLAMIDE
     Indication: OPEN ANGLE GLAUCOMA
     Dosage: 1/2 X 3
     Route: 048

REACTIONS (5)
  - Open angle glaucoma [Recovering/Resolving]
  - Drug ineffective [Unknown]
  - Ocular surface disease [Recovering/Resolving]
  - Condition aggravated [Recovering/Resolving]
  - Toxicity to various agents [Recovering/Resolving]
